FAERS Safety Report 4731269-1 (Version None)
Quarter: 2005Q3

REPORT INFORMATION
  Report Type: 
  Country: None (occurrence: None)
  Receive Date: 20050802
  Receipt Date: 20050722
  Transmission Date: 20060218
  Serious: Yes (Hospitalization)
  Sender: FDA-Public Use
  Company Number: CH-ABBOTT-05P-151-0306422-00

PATIENT
  Sex: Male

DRUGS (4)
  1. BIAXIN [Suspect]
     Indication: GASTRITIS
     Route: 048
     Dates: start: 20041231, end: 20050109
  2. DONEPEZIL HYDROCHLORIDE [Suspect]
     Indication: DEMENTIA ALZHEIMER'S TYPE
     Route: 048
     Dates: start: 20041115, end: 20050103
  3. AMOXICILLIN [Concomitant]
     Indication: GASTRITIS
     Route: 048
     Dates: start: 20041231, end: 20050109
  4. PHENPROCOUMON [Concomitant]
     Indication: ATRIAL FIBRILLATION
     Route: 048
     Dates: start: 20041028

REACTIONS (2)
  - DIZZINESS [None]
  - HYPOTENSION [None]
